FAERS Safety Report 6781554-7 (Version None)
Quarter: 2010Q2

REPORT INFORMATION
  Report Type: 
  Country: None (occurrence: None)
  Receive Date: 20100621
  Receipt Date: 20100609
  Transmission Date: 20101027
  Serious: No
  Sender: FDA-Public Use
  Company Number: US-B.I. PHARMACEUTICALS,INC./RIDGEFIELD-2010-BP-06503BP

PATIENT
  Age: 70 Year
  Sex: Male

DRUGS (8)
  1. SPIRIVA [Suspect]
     Indication: EMPHYSEMA
     Dosage: 18 MCG
     Route: 055
     Dates: start: 20060101
  2. COUMADIN [Concomitant]
     Indication: ANTIPHOSPHOLIPID ANTIBODIES
  3. CARDURA [Concomitant]
     Indication: HYPERTENSION
  4. LISINOPRIL [Concomitant]
     Indication: HYPERTENSION
  5. VERELAN [Concomitant]
     Indication: HYPERTENSION
  6. PREVACID [Concomitant]
     Indication: BARRETT'S OESOPHAGUS
  7. ADVAIR DISKUS 100/50 [Concomitant]
     Indication: EMPHYSEMA
  8. SINGULAIR [Concomitant]
     Indication: SEASONAL ALLERGY

REACTIONS (4)
  - BRONCHITIS [None]
  - DRUG INEFFECTIVE [None]
  - DYSPNOEA [None]
  - PULMONARY FIBROSIS [None]
